FAERS Safety Report 6505212-9 (Version None)
Quarter: 2009Q4

REPORT INFORMATION
  Report Type: 
  Country: None (occurrence: None)
  Receive Date: 20091218
  Receipt Date: 20091216
  Transmission Date: 20100525
  Serious: Yes (Death, Other)
  Sender: FDA-Public Use
  Company Number: PHEH2009US15165

PATIENT
  Sex: Male
  Weight: 80.771 kg

DRUGS (6)
  1. EXJADE [Suspect]
     Indication: HAEMOCHROMATOSIS
     Dosage: 625 MG DAILY
     Dates: start: 20090518
  2. DEPAKOTE [Concomitant]
     Route: 048
  3. LITHIUM [Concomitant]
     Route: 048
  4. COUMADIN [Concomitant]
     Route: 048
  5. METOPROLOL TARTRATE [Concomitant]
     Route: 048
  6. FOLIC ACID [Concomitant]

REACTIONS (9)
  - ALANINE AMINOTRANSFERASE INCREASED [None]
  - ASPARTATE AMINOTRANSFERASE INCREASED [None]
  - BLOOD BILIRUBIN INCREASED [None]
  - HAEMOGLOBIN DECREASED [None]
  - MYOCARDIAL INFARCTION [None]
  - PLATELET COUNT INCREASED [None]
  - RESPIRATION ABNORMAL [None]
  - UNRESPONSIVE TO STIMULI [None]
  - WHITE BLOOD CELL COUNT INCREASED [None]
